FAERS Safety Report 5805330-4 (Version None)
Quarter: 2008Q3

REPORT INFORMATION
  Report Type: 
  Country: None (occurrence: None)
  Receive Date: 20080709
  Receipt Date: 20080702
  Transmission Date: 20090109
  Serious: Yes (Hospitalization)
  Sender: FDA-Public Use
  Company Number: US-ELI_LILLY_AND_COMPANY-US200807000566

PATIENT
  Sex: Male

DRUGS (3)
  1. HUMULIN N [Suspect]
     Dosage: UNK, UNK
     Route: 058
  2. HUMULIN N [Suspect]
  3. OMEPRAZOLE [Concomitant]
     Dosage: 20 MG, EACH EVENING

REACTIONS (4)
  - BLOOD GLUCOSE DECREASED [None]
  - BLOOD GLUCOSE INCREASED [None]
  - FLATULENCE [None]
  - GASTROINTESTINAL DISORDER [None]
